FAERS Safety Report 10667064 (Version 1)
Quarter: 2014Q4

REPORT INFORMATION
  Report Type: Report from Study
  Country: US (occurrence: None)
  Receive Date: 20141218
  Receipt Date: 20141218
  Transmission Date: 20150529
  Serious: Yes (Other)
  Sender: FDA-Public Use
  Company Number: K201406768

PATIENT
  Age: 23 Year
  Sex: Female

DRUGS (5)
  1. LAMIVUDINE (LAMIVUDINE) TABLET [Suspect]
     Active Substance: LAMIVUDINE
  2. SUSTIVA [Suspect]
     Active Substance: EFAVIRENZ
     Indication: HIV INFECTION
     Route: 048
     Dates: start: 20120524, end: 20130228
  3. TENOFOVIR DISOPROXIL FUMARATE [Suspect]
     Active Substance: TENOFOVIR DISOPROXIL FUMARATE
     Indication: HIV INFECTION
     Route: 048
     Dates: start: 20120524, end: 20130228
  4. LAMIVUDINE (LAMIVUDINE) TABLET [Suspect]
     Active Substance: LAMIVUDINE
     Indication: HIV INFECTION
     Route: 048
     Dates: start: 20120524, end: 20130228
  5. LAMIVUDINE (LAMIVUDINE) TABLET [Suspect]
     Active Substance: LAMIVUDINE

REACTIONS (5)
  - Pregnancy [None]
  - Gastrooesophageal reflux disease [None]
  - Amniotic cavity infection [None]
  - Maternal exposure during pregnancy [None]
  - Delayed delivery [None]

NARRATIVE: CASE EVENT DATE: 20130125
